FAERS Safety Report 9365719 (Version 1)
Quarter: 2013Q2

REPORT INFORMATION
  Report Type: Spontaneous
  Country: US (occurrence: None)
  Receive Date: 20130624
  Receipt Date: 20130624
  Transmission Date: 20140414
  Serious: Yes (Life-Threatening, Hospitalization)
  Sender: FDA-Public Use
  Company Number: None

PATIENT
  Age: 52 Year
  Sex: Male
  Weight: 77 kg

DRUGS (2)
  1. CEFAZOLIN [Suspect]
     Indication: SURGERY
     Route: 042
     Dates: start: 20130618, end: 20130618
  2. BUPIVACAINE [Suspect]
     Indication: SURGERY
     Route: 042
     Dates: start: 20130618, end: 20130618

REACTIONS (1)
  - Anaphylactic reaction [None]
